FAERS Safety Report 4724261-4 (Version None)
Quarter: 2005Q3

REPORT INFORMATION
  Report Type: 
  Country: None (occurrence: None)
  Receive Date: 20050722
  Receipt Date: 20050718
  Transmission Date: 20060218
  Serious: Yes (Hospitalization)
  Sender: FDA-Public Use
  Company Number: 212957

PATIENT
  Age: 72 Year
  Sex: Male
  Weight: 83 kg

DRUGS (12)
  1. MABTHERA (RITUXIMAB) CONC FOR SOLUTION FOR INFUSION [Suspect]
     Indication: CHRONIC LYMPHOCYTIC LEUKAEMIA
     Dosage: 1000 MG, INTRAVENOUS
     Route: 042
     Dates: start: 20050222
  2. CYCLOPHOSPHAMIDE [Suspect]
     Indication: CHRONIC LYMPHOCYTIC LEUKAEMIA
     Dosage: 500 MG, INTRAVENOUS
     Route: 042
     Dates: start: 20050222, end: 20050224
  3. FLUDARABINE PHOSPHATE [Suspect]
     Indication: CHRONIC LYMPHOCYTIC LEUKAEMIA
     Dosage: 50 MG, INTRAVENOUS
     Route: 042
     Dates: start: 20050222, end: 20050224
  4. ENOXAPARIN SODIUM [Concomitant]
  5. SIMVASTATIN [Concomitant]
  6. ALLOPURINOL [Concomitant]
  7. ACETYLCYSTEINE [Concomitant]
  8. CARVEDILOL [Concomitant]
  9. ACEMIN (LISINOPRIL) [Concomitant]
  10. THROMBO ASPIRIN (ASPIRIN) [Concomitant]
  11. ACICLOBENE (ACYCLOVIR) [Concomitant]
  12. LIDAPRIM (TRIMETHOPRIM, SULFAMETROLE) [Concomitant]

REACTIONS (1)
  - FEBRILE NEUTROPENIA [None]
